FAERS Safety Report 5098919-4 (Version None)
Quarter: 2006Q3

REPORT INFORMATION
  Report Type: 
  Country: None (occurrence: None)
  Receive Date: 20060905
  Receipt Date: 20060829
  Transmission Date: 20061208
  Serious: Yes (Other)
  Sender: FDA-Public Use
  Company Number: 2006104450

PATIENT
  Age: 36 Year
  Sex: Male
  Weight: 90.7194 kg

DRUGS (5)
  1. ZANTAC 150 [Suspect]
     Indication: DYSPEPSIA
     Dosage: 750 TO 1250 MG DAILY, ORAL
     Route: 048
     Dates: start: 19960101
  2. BETANIDINE SULFATE (BETANIDINE SULFATE) [Concomitant]
  3. VITAMINS NOS (VITAMINS NOS) [Concomitant]
  4. OXYCODONE (OXYCODONE) [Concomitant]
  5. OXYBUTYNIN CHLORIDE [Concomitant]

REACTIONS (2)
  - INCORRECT DOSE ADMINISTERED [None]
  - PAIN [None]
